FAERS Safety Report 4723156-X (Version None)
Quarter: 2005Q3

REPORT INFORMATION
  Report Type: 
  Country: None (occurrence: None)
  Receive Date: 20050719
  Receipt Date: 20040723
  Transmission Date: 20060218
  Serious: Yes (Other)
  Sender: FDA-Public Use
  Company Number: 2004225905US

PATIENT
  Sex: Male
  Weight: 77.1 kg

DRUGS (7)
  1. CELEBREX [Suspect]
     Indication: ARTHRITIS
     Dosage: 200 MG, PRN, ORAL
     Route: 048
  2. ARTHROTEC [Suspect]
     Indication: RIB FRACTURE
     Dosage: UNK, UNK, ORAL
     Route: 048
     Dates: start: 20040701
  3. HERBAL PREPARATION [Concomitant]
  4. VITAMINS [Concomitant]
  5. GLUCOSAMINE [Concomitant]
  6. NIACINAMIDE [Concomitant]
  7. JOINT ADVANTAGE [Concomitant]

REACTIONS (7)
  - ABDOMINAL PAIN UPPER [None]
  - ACCIDENT [None]
  - DRY MOUTH [None]
  - MENTAL DISORDER [None]
  - PAIN [None]
  - RIB FRACTURE [None]
  - STOMACH DISCOMFORT [None]
